FAERS Safety Report 9404064 (Version 2)
Quarter: 2013Q3

REPORT INFORMATION
  Report Type: Spontaneous
  Country: DE (occurrence: None)
  Receive Date: 20130712
  Receipt Date: 20130913
  Transmission Date: 20140515
  Serious: Yes (Hospitalization, Disabling, Other)
  Sender: FDA-Public Use
  Company Number: 1307-886

PATIENT
  Age: 76 Year
  Sex: Male

DRUGS (1)
  1. EYLEA [Suspect]
     Indication: AGE-RELATED MACULAR DEGENERATION
     Route: 031
     Dates: start: 20130410, end: 20130410

REACTIONS (3)
  - Detachment of retinal pigment epithelium [None]
  - Vitreous adhesions [None]
  - Visual acuity reduced [None]
